FAERS Safety Report 8792891 (Version 2)
Quarter: 2015Q1

REPORT INFORMATION
  Report Type: Report from Study
  Country: US (occurrence: US)
  Receive Date: 20120918
  Receipt Date: 20150303
  Transmission Date: 20150721
  Serious: Yes (Death)
  Sender: FDA-Public Use
  Company Number: US-ROCHE-1090916

PATIENT
  Sex: Male

DRUGS (5)
  1. AVASTIN [Suspect]
     Active Substance: BEVACIZUMAB
     Indication: MALIGNANT URINARY TRACT NEOPLASM
  2. PEPCID [Concomitant]
     Active Substance: FAMOTIDINE
     Route: 065
  3. AVASTIN [Suspect]
     Active Substance: BEVACIZUMAB
     Indication: RENAL CANCER
     Route: 042
     Dates: start: 20050621
  4. BENADRYL [Concomitant]
     Active Substance: DIPHENHYDRAMINE HYDROCHLORIDE
     Route: 065
  5. DEXAMETHASONE. [Concomitant]
     Active Substance: DEXAMETHASONE
     Route: 065

REACTIONS (15)
  - Lung infiltration [Unknown]
  - Diverticulum intestinal [Unknown]
  - Fatigue [Unknown]
  - Nausea [Unknown]
  - Pleural effusion [Unknown]
  - Inguinal hernia [Unknown]
  - Hyperhidrosis [Unknown]
  - Weight decreased [Unknown]
  - Ascites [Unknown]
  - Asthenia [Unknown]
  - Pain [Unknown]
  - Diarrhoea [Unknown]
  - Death [Fatal]
  - Cold sweat [Unknown]
  - Off label use [Unknown]
